FAERS Safety Report 6414616-4 (Version None)
Quarter: 2009Q4

REPORT INFORMATION
  Report Type: 
  Country: None (occurrence: None)
  Receive Date: 20091021
  Receipt Date: 20091013
  Transmission Date: 20100525
  Serious: Yes (Disabling)
  Sender: FDA-Public Use
  Company Number: 404725

PATIENT
  Sex: Male

DRUGS (1)
  1. MARCAINE [Suspect]
     Indication: ANAESTHESIA
     Dosage: 300 ML, INJECTION
     Route: 042
     Dates: start: 20040101

REACTIONS (2)
  - CARTILAGE INJURY [None]
  - CHONDROLYSIS [None]
